FAERS Safety Report 8240034-2 (Version None)
Quarter: 2012Q1

REPORT INFORMATION
  Report Type: 
  Country: None (occurrence: None)
  Receive Date: 20120309
  Receipt Date: 20110131
  Transmission Date: 20120608
  Serious: Yes (Other)
  Sender: FDA-Public Use
  Company Number: PHHY2011US02096

PATIENT
  Age: 24 Year
  Sex: Female

DRUGS (6)
  1. ALBUTEROL [Concomitant]
  2. CYMBALTA [Concomitant]
  3. EXTAVIA [Suspect]
     Indication: MULTIPLE SCLEROSIS
     Dosage: 0.0625 MG, QOD, SUBCUTANEOUS
     Route: 058
  4. CELEXA [Concomitant]
  5. IUD NOS (INTRAUTERINE CONTRACEPTIVE DEVICE) [Concomitant]
  6. ADVAIR HFA [Concomitant]

REACTIONS (3)
  - MULTIPLE SCLEROSIS RELAPSE [None]
  - SLUGGISHNESS [None]
  - HYPOAESTHESIA [None]
